FAERS Safety Report 8434865-3 (Version None)
Quarter: 2012Q2

REPORT INFORMATION
  Report Type: 
  Country: None (occurrence: None)
  Receive Date: 20120614
  Receipt Date: 20120604
  Transmission Date: 20120825
  Serious: Yes (Hospitalization)
  Sender: FDA-Public Use
  Company Number: US-BAYER-2012-056922

PATIENT
  Age: 24 Year
  Sex: Female
  Weight: 48.98 kg

DRUGS (15)
  1. AZITHROMYCIN [Concomitant]
     Dosage: 500 MG, 1 TABLET DAILY
     Route: 048
  2. VITAMIN D2 [Concomitant]
     Dosage: 1.25 MG, OW
  3. NUCYNTA [Concomitant]
     Indication: ARTHRALGIA
  4. DROSPIRENONE AND ETHINYL ESTRADIOL [Suspect]
  5. XANAX [Concomitant]
     Dosage: 0.5 MG, UNK
  6. AMOXICILLIN AND CLAVULANATE POTASSIUM [Concomitant]
     Dosage: 125 MG, UNK
     Route: 048
  7. AMOXICILLIN AND CLAVULANATE POTASSIUM [Concomitant]
     Dosage: 875 MG, UNK
     Route: 048
  8. VITAMIN D2 [Concomitant]
     Dosage: 50000 UNITS, OW
     Route: 048
  9. CYCLOBENZAPRINE [Concomitant]
     Dosage: 10 MG, BID
     Route: 048
  10. ADDERALL 5 [Concomitant]
     Indication: ATTENTION DEFICIT/HYPERACTIVITY DISORDER
     Dosage: 30 MG, ONCE DAILY
     Route: 048
  11. VICODIN [Concomitant]
     Indication: PAIN
  12. YAZ [Suspect]
  13. MECLIZINE [Concomitant]
     Dosage: 25 MG, UNK
     Route: 048
  14. AMPHETAMINE AND DEXTROAMPHETAMINE SALTS [Concomitant]
     Dosage: 30 MG, UNK
     Route: 048
  15. MS CONTIN [Concomitant]
     Indication: ARTHRALGIA
     Dosage: 15 MG, EVERY 12 HOURS
     Route: 048

REACTIONS (1)
  - CEREBROVASCULAR ACCIDENT [None]
